FAERS Safety Report 9701687 (Version 1)
Quarter: 2013Q4

REPORT INFORMATION
  Report Type: Report from Study
  Country: None (occurrence: US)
  Receive Date: 20131119
  Receipt Date: 20131119
  Transmission Date: 20140711
  Serious: Yes (Other)
  Sender: FDA-Public Use
  Company Number: US-SAVIENT-2013S1000038

PATIENT
  Age: 64 Year
  Sex: Male

DRUGS (1)
  1. KRYSTEXXA [Suspect]
     Indication: PRODUCT USED FOR UNKNOWN INDICATION
     Route: 042
     Dates: start: 20130415, end: 20130415

REACTIONS (2)
  - Infusion related reaction [Unknown]
  - Therapeutic response decreased [Unknown]
